FAERS Safety Report 5599819-3 (Version None)
Quarter: 2008Q1

REPORT INFORMATION
  Report Type: 
  Country: None (occurrence: None)
  Receive Date: 20080123
  Receipt Date: 20080121
  Transmission Date: 20080703
  Serious: Yes (Death, Hospitalization)
  Sender: FDA-Public Use
  Company Number: FR-TEVA-140537USA

PATIENT
  Age: 51 Year
  Sex: Female

DRUGS (3)
  1. PIMOZIDE TABLETS [Suspect]
     Route: 048
     Dates: start: 20000101
  2. FLUOXETINE HYDROCHLORIDE [Concomitant]
     Dates: start: 19990101
  3. LITHIUM CARBONATE [Concomitant]
     Dates: start: 19990101

REACTIONS (2)
  - ANXIETY [None]
  - SUDDEN DEATH [None]
